FAERS Safety Report 4582101-0 (Version None)
Quarter: 2005Q1

REPORT INFORMATION
  Report Type: 
  Country: None (occurrence: None)
  Receive Date: 20050119
  Receipt Date: 20031203
  Transmission Date: 20050727
  Serious: Yes (Hospitalization)
  Sender: FDA-Public Use
  Company Number: A03200302895

PATIENT
  Age: 59 Year
  Sex: Female
  Weight: 69.4003 kg

DRUGS (33)
  1. PLAVIX [Suspect]
     Indication: STENT PLACEMENT
     Dosage: 75 MG QD - ORAL
     Route: 048
     Dates: start: 20010301, end: 20010401
  2. LUTEINE [Concomitant]
  3. LYCOPENE [Concomitant]
  4. LECITHIN [Concomitant]
  5. ALPHA LYPOIC ACID [Concomitant]
  6. THERAGRAN-M [Concomitant]
  7. SELENIUM TRACE METAL ADDITIVE [Concomitant]
  8. FISH OIL [Concomitant]
  9. VITAMIN E [Concomitant]
  10. CALCIUM GLUCONATE [Concomitant]
  11. ZINC [Concomitant]
  12. VITAMIN B6 [Concomitant]
  13. VITAMIN B-12 [Concomitant]
  14. FOLIC ACID [Concomitant]
  15. MAGNESIUM [Concomitant]
  16. GARLIC [Concomitant]
  17. VITAMIN C [Concomitant]
  18. GLUCOSAMINE + CHONDROITIN [Concomitant]
  19. TRIAMTERENE AND HYDROCHLOROTHIAZIDE [Concomitant]
  20. BICALUTAMIDE [Concomitant]
  21. DEXAMETHASONE [Concomitant]
  22. CEPHALEXIN MONOHYDRATE [Concomitant]
  23. LEVOTHYROXINE SODIUM [Concomitant]
  24. POTASSIUM CHLORIDE [Concomitant]
  25. ACETYLSALICYLIC ACID SRT [Concomitant]
  26. INDAPAMIDE [Concomitant]
  27. RIFAMPIN [Concomitant]
  28. OXYBUTYNIN HYDROCHLORIDE [Concomitant]
  29. RAMIPRIL [Concomitant]
  30. METOPROLOL TARTRATE [Concomitant]
  31. CARISOPRODOL [Concomitant]
  32. NITROGLYCERIN [Concomitant]
  33. INSULIN HUMAN ZINC SUSPENSION [Concomitant]

REACTIONS (3)
  - CONTUSION [None]
  - MYOCARDIAL INFARCTION [None]
  - STENT OCCLUSION [None]
